FAERS Safety Report 5470205-X (Version None)
Quarter: 2007Q3

REPORT INFORMATION
  Report Type: 
  Country: None (occurrence: None)
  Receive Date: 20070927
  Receipt Date: 20070918
  Transmission Date: 20080115
  Serious: Yes (Death, Life-Threatening, Hospitalization)
  Sender: FDA-Public Use
  Company Number: AU-ABBOTT-07P-008-0415594-01

PATIENT
  Sex: Male

DRUGS (38)
  1. HUMIRA [Suspect]
     Indication: RHEUMATOID ARTHRITIS
     Route: 058
     Dates: start: 20050315, end: 20070802
  2. METHOTREXATE [Concomitant]
     Indication: RHEUMATOID ARTHRITIS
     Dates: start: 20001101, end: 20070809
  3. SULFASALAZINE [Concomitant]
     Indication: RHEUMATOID ARTHRITIS
     Dates: end: 20070811
  4. PREDNISOLONE [Concomitant]
     Indication: RHEUMATOID ARTHRITIS
     Dates: end: 20070810
  5. PREDNISOLONE [Concomitant]
     Dates: start: 20070815, end: 20070817
  6. PREDNISOLONE [Concomitant]
     Dates: start: 20070818, end: 20070823
  7. PREDNISOLONE [Concomitant]
     Dates: start: 20070824, end: 20070824
  8. COMMERCIAL HUMIRA [Concomitant]
     Indication: RHEUMATOID ARTHRITIS
     Route: 058
     Dates: start: 20040729
  9. GABAPENTIN [Concomitant]
     Indication: PAIN
     Dates: start: 20070101, end: 20070101
  10. INDOMETHACIN [Concomitant]
     Indication: PAIN
     Dates: start: 20070101
  11. FUROSEMIDE [Concomitant]
     Indication: CARDIOVASCULAR EVENT PROPHYLAXIS
     Dates: start: 20070808, end: 20070824
  12. FUROSEMIDE [Concomitant]
     Dates: start: 20070808, end: 20070808
  13. FUROSEMIDE [Concomitant]
     Route: 042
     Dates: start: 20070813, end: 20070819
  14. FUROSEMIDE [Concomitant]
     Route: 042
     Dates: start: 20070814, end: 20070815
  15. FUROSEMIDE [Concomitant]
     Route: 042
     Dates: start: 20070823, end: 20070823
  16. ASPIRIN [Concomitant]
     Indication: CARDIOVASCULAR EVENT PROPHYLAXIS
     Dates: start: 20070808, end: 20070824
  17. SODIUM POLYSTYRENE SULFONATE [Concomitant]
     Indication: BLOOD POTASSIUM INCREASED
     Dates: start: 20070808, end: 20070808
  18. SODIUM POLYSTYRENE SULFONATE [Concomitant]
     Dates: start: 20070811, end: 20070811
  19. CEFTRIAXONE [Concomitant]
     Indication: INFECTION
     Dates: start: 20070810, end: 20070816
  20. CEFTRIAXONE [Concomitant]
     Dates: start: 20070821, end: 20070821
  21. RAMIPRIL [Concomitant]
     Indication: CARDIOVASCULAR EVENT PROPHYLAXIS
     Dates: start: 20070808, end: 20070823
  22. RAMIPRIL [Concomitant]
     Indication: RENAL DISORDER
  23. AUGMENTIN D.F. [Concomitant]
     Indication: INFECTION
     Dates: start: 20070808, end: 20070810
  24. PARACETAMOL [Concomitant]
     Indication: RHEUMATOID ARTHRITIS
     Dates: start: 20070814, end: 20070823
  25. MORPHINE [Concomitant]
     Indication: RHEUMATOID ARTHRITIS
     Dates: start: 20070816, end: 20070825
  26. TEMAZEPAM [Concomitant]
     Indication: SEDATION
     Dates: start: 20070808, end: 20070820
  27. TEMAZEPAM [Concomitant]
     Dates: start: 20070818, end: 20070818
  28. POTASSIUM CHLORIDE [Concomitant]
     Indication: HYPOKALAEMIA
     Dates: start: 20070811, end: 20070812
  29. FLUOXAMINE [Concomitant]
     Indication: ANXIETY
     Dates: start: 20070808, end: 20070810
  30. ATORVASTATIN CALCIUM [Concomitant]
     Indication: LIPID METABOLISM DISORDER
     Dates: start: 20070808, end: 20070810
  31. GLYCOPYRRONIUM BROMIDE [Concomitant]
     Indication: CHRONIC OBSTRUCTIVE PULMONARY DISEASE
     Dates: start: 20070825, end: 20070825
  32. CARVEDILOL [Concomitant]
     Indication: CORONARY ARTERY DISEASE
     Dates: start: 20070808, end: 20070810
  33. BISOPROLOL [Concomitant]
     Indication: CORONARY ARTERY DISEASE
     Dates: start: 20070812, end: 20070814
  34. PANTOPRAZOLE SODIUM [Concomitant]
     Indication: PROPHYLAXIS AGAINST GASTROINTESTINAL ULCER
     Dates: start: 20070808, end: 20070824
  35. HYDROCORTISONE [Concomitant]
     Indication: RHEUMATOID ARTHRITIS
     Dates: start: 20070810, end: 20070814
  36. TIOTROPIUM BROMIDE [Concomitant]
     Indication: CHRONIC OBSTRUCTIVE PULMONARY DISEASE
     Dates: start: 20070812, end: 20070824
  37. SERETIDE [Concomitant]
     Indication: CHRONIC OBSTRUCTIVE PULMONARY DISEASE
     Dates: start: 20070810, end: 20070824
  38. SALBUTAMOL [Concomitant]
     Indication: CHRONIC OBSTRUCTIVE PULMONARY DISEASE
     Dates: start: 20070814, end: 20070822

REACTIONS (4)
  - HEPATIC FAILURE [None]
  - ISCHAEMIC CARDIOMYOPATHY [None]
  - PLATELET COUNT DECREASED [None]
  - RENAL FAILURE [None]
